FAERS Safety Report 14073589 (Version 1)
Quarter: 2017Q4

REPORT INFORMATION
  Report Type: Spontaneous
  Country: US (occurrence: US)
  Receive Date: 20171010
  Receipt Date: 20171010
  Transmission Date: 20180321
  Serious: No
  Sender: FDA-Public Use
  Company Number: US-JNJFOC-20170822758

PATIENT
  Age: 77 Year
  Sex: Female
  Weight: 113.4 kg

DRUGS (5)
  1. PAXIL [Concomitant]
     Active Substance: PAROXETINE HYDROCHLORIDE
     Indication: LIBIDO DISORDER
     Dosage: DAILY, } 10 YEARS
     Route: 065
  2. MELOXICAM. [Concomitant]
     Active Substance: MELOXICAM
     Indication: ARTHRALGIA
     Dosage: DAILY, 1 YEAR
     Route: 065
  3. METOPROLOL TARTRATE. [Concomitant]
     Active Substance: METOPROLOL TARTRATE
     Indication: CARDIAC DISORDER
     Dosage: INTERVAL: }10 YEARS
     Route: 065
  4. VALIUM [Concomitant]
     Active Substance: DIAZEPAM
     Indication: ANXIETY DISORDER
     Dosage: INTERVAL: }10 YEARS
     Route: 065
  5. TYLENOL EXTRA STRENGTH [Suspect]
     Active Substance: ACETAMINOPHEN
     Indication: ANALGESIC THERAPY
     Route: 048
     Dates: start: 201708, end: 201708

REACTIONS (2)
  - Incorrect dose administered [Unknown]
  - Urinary incontinence [Recovered/Resolved]

NARRATIVE: CASE EVENT DATE: 201708
